FAERS Safety Report 15570455 (Version 1)
Quarter: 2018Q4

REPORT INFORMATION
  Report Type: Spontaneous
  Country: GB (occurrence: GB)
  Receive Date: 20181031
  Receipt Date: 20181031
  Transmission Date: 20190205
  Serious: Yes (Hospitalization)
  Sender: FDA-Public Use
  Company Number: PHHY2018GB142736

PATIENT
  Age: 40 Year
  Sex: Female

DRUGS (1)
  1. QUETIAPINE. [Suspect]
     Active Substance: QUETIAPINE
     Indication: POST-TRAUMATIC STRESS DISORDER
     Route: 048

REACTIONS (4)
  - Off label use [Unknown]
  - Cataract [Recovered/Resolved]
  - Angle closure glaucoma [Recovered/Resolved]
  - Product use in unapproved indication [Unknown]
